FAERS Safety Report 24328469 (Version 4)
Quarter: 2025Q1

REPORT INFORMATION
  Report Type: Spontaneous
  Country: GB (occurrence: GB)
  Receive Date: 20240917
  Receipt Date: 20250206
  Transmission Date: 20250408
  Serious: Yes (Hospitalization)
  Sender: VERTEX
  Company Number: US-VERTEX PHARMACEUTICALS-2024-014476

PATIENT
  Age: 28 Year

DRUGS (1)
  1. TRIKAFTA [Suspect]
     Active Substance: ELEXACAFTOR\IVACAFTOR\TEZACAFTOR
     Indication: Cystic fibrosis
     Route: 048

REACTIONS (9)
  - Brain fog [Unknown]
  - Burkholderia cepacia complex infection [Unknown]
  - Pseudomonas infection [Unknown]
  - Memory impairment [Unknown]
  - Insomnia [Unknown]
  - Asthenia [Unknown]
  - Lower respiratory tract infection [Unknown]
  - Alopecia [Unknown]
  - Anxiety [Unknown]
